FAERS Safety Report 9286773 (Version 1)
Quarter: 2012Q4

REPORT INFORMATION
  Report Type: Spontaneous
  Country: US (occurrence: None)
  Receive Date: 20120912
  Receipt Date: 20120912
  Transmission Date: 20130627
  Serious: Yes (Other)
  Sender: FDA-Public Use
  Company Number: AUR-APL-2012-02382

PATIENT
  Age: 62 Year
  Sex: Male

DRUGS (9)
  1. SIMVASTATIN [Suspect]
     Indication: HYPERTENSION
     Dates: start: 20080821, end: 201205
  2. SIMVASTATIN [Suspect]
     Indication: CEREBROVASCULAR ACCIDENT
     Dates: start: 20080821, end: 201205
  3. SIMVASTATIN [Suspect]
     Dates: start: 20080821, end: 201205
  4. FELODIPINE (FELODIPINE) [Concomitant]
  5. CARVEDILOL (CARVEDILOL) [Concomitant]
  6. AERIUS (DESLORATADINE) [Concomitant]
  7. ALBYL-E (ALBYL-ENTEROSOLUBILE) [Concomitant]
  8. FAMOTIDINE (FAMOTIDINE) [Concomitant]
  9. METFORMIN HYDROCHLORIDE (METFORMIN HYDROCHLORIDE) [Concomitant]

REACTIONS (3)
  - Urinary bladder haemorrhage [None]
  - Myositis [None]
  - Urinary bladder varices [None]
